FAERS Safety Report 15935575 (Version 1)
Quarter: 2019Q1

REPORT INFORMATION
  Report Type: Spontaneous
  Country: IT (occurrence: IT)
  Receive Date: 20190208
  Receipt Date: 20190208
  Transmission Date: 20190417
  Serious: Yes (Hospitalization)
  Sender: FDA-Public Use
  Company Number: IT-ACCORD-105997

PATIENT
  Age: 66 Year
  Sex: Male
  Weight: 90 kg

DRUGS (7)
  1. LASIX [Concomitant]
     Active Substance: FUROSEMIDE
     Dosage: 25 MG TABLETS
     Route: 048
  2. LUCEN [Concomitant]
     Active Substance: ESOMEPRAZOLE
     Dosage: 40 MG GASTRO-RESISTANT TABLETS
     Route: 048
  3. CAPECITABINE. [Suspect]
     Active Substance: CAPECITABINE
     Indication: COLON CANCER METASTATIC
     Route: 048
     Dates: start: 20170207, end: 20171004
  4. BEVACIZUMAB. [Interacting]
     Active Substance: BEVACIZUMAB
     Indication: COLON CANCER METASTATIC
     Route: 042
     Dates: start: 20170207, end: 20171004
  5. ALLOPURINOL. [Concomitant]
     Active Substance: ALLOPURINOL
     Route: 048
  6. RAMIPRIL RATIOPHARM [Concomitant]
     Active Substance: RAMIPRIL
     Route: 048
  7. FLUXUM [Concomitant]
     Active Substance: PARNAPARIN SODIUM
     Dosage: 4.250 IU. AXA SOLUTION FOR INJECTION IN PRE-FILLED SYRINGE
     Route: 058

REACTIONS (2)
  - Subdural haematoma [Recovered/Resolved with Sequelae]
  - Drug interaction [Unknown]

NARRATIVE: CASE EVENT DATE: 20171025
